FAERS Safety Report 5150890-2 (Version None)
Quarter: 2006Q4

REPORT INFORMATION
  Report Type: 
  Country: None (occurrence: None)
  Receive Date: 20061108
  Receipt Date: 20061030
  Transmission Date: 20070319
  Serious: Yes (Other)
  Sender: FDA-Public Use
  Company Number: 2006133101

PATIENT
  Age: 37 Year
  Sex: Female

DRUGS (3)
  1. PROVERA [Suspect]
     Indication: MENSTRUATION IRREGULAR
     Dosage: 10 MG (10 MG, EVERY DAY), ORAL
     Route: 048
     Dates: start: 20061027
  2. OMEPRAZOLE [Concomitant]
  3. ANALGESICS (ANALGESICS) [Concomitant]

REACTIONS (5)
  - DYSMENORRHOEA [None]
  - DYSPHAGIA [None]
  - HEADACHE [None]
  - MENORRHAGIA [None]
  - THROAT TIGHTNESS [None]
